FAERS Safety Report 5883712-2 (Version None)
Quarter: 2008Q3

REPORT INFORMATION
  Report Type: 
  Country: None (occurrence: None)
  Receive Date: 20080912
  Receipt Date: 20080912
  Transmission Date: 20090109
  Serious: Yes (Hospitalization, Other)
  Sender: FDA-Public Use
  Company Number: None

PATIENT
  Age: 15 Year
  Sex: Female

DRUGS (3)
  1. CITALOPRAM HYDROBROMIDE [Suspect]
     Indication: BIPOLAR DISORDER
     Dosage: 20MG DAILY PO
     Route: 048
     Dates: start: 20080829, end: 20080909
  2. CITALOPRAM HYDROBROMIDE [Suspect]
     Indication: DEPRESSION
     Dosage: 20MG DAILY PO
     Route: 048
     Dates: start: 20080829, end: 20080909
  3. LAMOTRIGINE [Suspect]
     Dosage: 150MG DAILY PO
     Route: 048
     Dates: start: 20080829, end: 20080909

REACTIONS (3)
  - AREFLEXIA [None]
  - SOMNOLENCE [None]
  - VOMITING [None]
